FAERS Safety Report 7517361-7 (Version None)
Quarter: 2011Q2

REPORT INFORMATION
  Report Type: 
  Country: None (occurrence: None)
  Receive Date: 20110601
  Receipt Date: 20100201
  Transmission Date: 20111010
  Serious: Yes (Other)
  Sender: FDA-Public Use
  Company Number: US-BAYER-201012957NA

PATIENT
  Sex: Female

DRUGS (2)
  1. AVELOX [Suspect]
     Indication: BRONCHITIS
  2. AVELOX [Suspect]
     Indication: ASTHMA

REACTIONS (3)
  - ARRHYTHMIA [None]
  - PAIN IN EXTREMITY [None]
  - NERVOUSNESS [None]
